FAERS Safety Report 13915119 (Version 1)
Quarter: 2017Q3

REPORT INFORMATION
  Report Type: Spontaneous
  Country: US (occurrence: US)
  Receive Date: 20170828
  Receipt Date: 20170828
  Transmission Date: 20171127
  Serious: No
  Sender: FDA-Public Use
  Company Number: None

PATIENT
  Age: 12 Year
  Sex: Female
  Weight: 31.5 kg

DRUGS (2)
  1. KIRKLAND CHILDREN^S COMPLETE MULTIVITAMIN [Concomitant]
  2. METRONIDAZOLE. [Suspect]
     Active Substance: METRONIDAZOLE
     Indication: ACNE
     Dosage: ?          OTHER ROUTE:TOPICALLY TO AFFECTED AREAS?
     Route: 061
     Dates: start: 20170710, end: 20170828

REACTIONS (2)
  - Clostridium difficile infection [None]
  - Neuropathy peripheral [None]

NARRATIVE: CASE EVENT DATE: 20170811
